FAERS Safety Report 6203589-5 (Version None)
Quarter: 2009Q2

REPORT INFORMATION
  Report Type: 
  Country: None (occurrence: None)
  Receive Date: 20090521
  Receipt Date: 20090505
  Transmission Date: 20091009
  Serious: Yes (Death)
  Sender: FDA-Public Use
  Company Number: ADE# 09-207DPR

PATIENT
  Age: 54 Year
  Sex: Male

DRUGS (6)
  1. DIGOXIN [Suspect]
     Indication: CARDIAC DISORDER
     Dosage: ONE TABLET DAILY; FOR FEW YEARS
  2. PILLS FOR LOW BLOOD PRESSURE [Concomitant]
  3. ASPIRIN [Concomitant]
  4. WATER PILL [Concomitant]
  5. DEPAKOTE [Concomitant]
  6. TOPROLOL [Concomitant]

REACTIONS (4)
  - CARDIAC DISORDER [None]
  - HAEMATEMESIS [None]
  - HYPOTENSION [None]
  - NAUSEA [None]
